FAERS Safety Report 9713659 (Version 1)
Quarter: 2013Q4

REPORT INFORMATION
  Report Type: Spontaneous
  Country: US (occurrence: None)
  Receive Date: 20131125
  Receipt Date: 20131125
  Transmission Date: 20140711
  Serious: Yes (Hospitalization)
  Sender: FDA-Public Use
  Company Number: None

PATIENT
  Age: 73 Year
  Sex: Male
  Weight: 72.7 kg

DRUGS (16)
  1. FLUOROURACIL [Suspect]
  2. LEUCOVORIN [Suspect]
  3. IRINOTECAN [Suspect]
  4. OXALIPLATIN [Suspect]
  5. MARINOL [Concomitant]
  6. ALBUTEROL [Concomitant]
  7. ASPIRIN [Concomitant]
  8. ATORVASTATIN CALCIUM [Concomitant]
  9. NITROSTAT [Concomitant]
  10. CLOPIDOGREL BISULFATE [Concomitant]
  11. DRONABINOL [Concomitant]
  12. ENOXAPARIN SODIUM [Concomitant]
  13. HYDROCODONE - ACETAMINOPHEN [Concomitant]
  14. LOSARTAN POTASSIUM [Concomitant]
  15. SYMBICORT [Concomitant]
  16. TERAZOSIN [Concomitant]

REACTIONS (1)
  - Febrile neutropenia [None]
